FAERS Safety Report 15270694 (Version 1)
Quarter: 2018Q3

REPORT INFORMATION
  Report Type: Spontaneous
  Country: US (occurrence: US)
  Receive Date: 20180726
  Receipt Date: 20180726
  Transmission Date: 20181010
  Serious: No
  Sender: FDA-Public Use
  Company Number: None

PATIENT
  Age: 68 Year
  Sex: Male

DRUGS (1)
  1. DOFETILIDE. [Suspect]
     Active Substance: DOFETILIDE
     Indication: ATRIAL FIBRILLATION
     Route: 048
     Dates: start: 20170801, end: 20180625

REACTIONS (4)
  - Dyspnoea [None]
  - Dizziness [None]
  - Pollakiuria [None]
  - Abdominal discomfort [None]

NARRATIVE: CASE EVENT DATE: 20180625
